FAERS Safety Report 15585288 (Version 2)
Quarter: 2018Q4

REPORT INFORMATION
  Report Type: Spontaneous
  Country: JP (occurrence: JP)
  Receive Date: 20181102
  Receipt Date: 20181231
  Transmission Date: 20190205
  Serious: Yes (Other)
  Sender: FDA-Public Use
  Company Number: JP-BAYER-2018-199693

PATIENT
  Age: 65 Year
  Sex: Female

DRUGS (2)
  1. NEXAVAR [Suspect]
     Active Substance: SORAFENIB
     Indication: POORLY DIFFERENTIATED THYROID CARCINOMA
     Dosage: DAILY DOSE 800 MG
     Route: 048
  2. NEXAVAR [Suspect]
     Active Substance: SORAFENIB
     Indication: POORLY DIFFERENTIATED THYROID CARCINOMA
     Dosage: DAILY DOSE 600 MG
     Route: 048

REACTIONS (5)
  - Poorly differentiated thyroid carcinoma [Unknown]
  - Palmar-plantar erythrodysaesthesia syndrome [Unknown]
  - Hypocalcaemia [Unknown]
  - Alopecia [Unknown]
  - Hypertension [Unknown]
